FAERS Safety Report 9325670 (Version 1)
Quarter: 2013Q2

REPORT INFORMATION
  Report Type: Spontaneous
  Country: US (occurrence: US)
  Receive Date: 20130604
  Receipt Date: 20130604
  Transmission Date: 20140414
  Serious: Yes (Other)
  Sender: FDA-Public Use
  Company Number: US-MERCK-1306USA000309

PATIENT
  Sex: Male

DRUGS (1)
  1. JANUVIA [Suspect]
     Indication: DIABETES MELLITUS
     Dosage: 100 MG, QD
     Route: 048
     Dates: end: 201305

REACTIONS (5)
  - Renal failure acute [Unknown]
  - Thirst [Unknown]
  - Dry mouth [Unknown]
  - Local swelling [Unknown]
  - Urine output decreased [Unknown]
